FAERS Safety Report 25244761 (Version 1)
Quarter: 2025Q2

REPORT INFORMATION
  Report Type: Report from Study
  Country: AU (occurrence: AU)
  Receive Date: 20250428
  Receipt Date: 20250428
  Transmission Date: 20250716
  Serious: Yes (Other)
  Sender: NOVARTIS
  Company Number: AU-002147023-NVSC2025AU036708

PATIENT
  Sex: Male

DRUGS (1)
  1. COSENTYX [Suspect]
     Active Substance: SECUKINUMAB
     Indication: Axial spondyloarthritis
     Route: 058
     Dates: start: 20250226

REACTIONS (9)
  - Back pain [Unknown]
  - Dyspnoea [Unknown]
  - Pain [Not Recovered/Not Resolved]
  - Crohn^s disease [Unknown]
  - Gastrointestinal pain [Unknown]
  - Hypertension [Unknown]
  - Melanocytic naevus [Unknown]
  - Stress [Unknown]
  - Fluid retention [Unknown]
